FAERS Safety Report 7488706-1 (Version None)
Quarter: 2011Q2

REPORT INFORMATION
  Report Type: 
  Country: None (occurrence: None)
  Receive Date: 20110518
  Receipt Date: 20110513
  Transmission Date: 20111010
  Serious: Yes (Death, Hospitalization)
  Sender: FDA-Public Use
  Company Number: B0719898A

PATIENT
  Age: 43 Year
  Sex: Female

DRUGS (1)
  1. AVANDIA [Suspect]
     Dosage: 4MG PER DAY
     Route: 048
     Dates: start: 20000201, end: 20050901

REACTIONS (3)
  - CARDIAC ARREST [None]
  - PULMONARY EMBOLISM [None]
  - ARRHYTHMIA [None]
